FAERS Safety Report 6275059-X (Version None)
Quarter: 2009Q3

REPORT INFORMATION
  Report Type: 
  Country: None (occurrence: None)
  Receive Date: 20090721
  Receipt Date: 20090707
  Transmission Date: 20100115
  Serious: Yes (Hospitalization)
  Sender: FDA-Public Use
  Company Number: EE-ROCHE-643028

PATIENT
  Sex: Female
  Weight: 91 kg

DRUGS (3)
  1. PEGASYS [Suspect]
     Route: 058
     Dates: start: 20090416
  2. PEGASYS [Suspect]
     Dosage: REPORTED AS DOSE OF PEGASYS REDUCED BY HALF.
     Route: 058
  3. MAREVAN [Concomitant]
     Dosage: DOSE REPORTED AS ^4,5MG^
     Route: 048
     Dates: start: 19991130

REACTIONS (4)
  - GINGIVAL BLEEDING [None]
  - MOUTH HAEMORRHAGE [None]
  - SPONTANEOUS HAEMATOMA [None]
  - THROMBOCYTOPENIC PURPURA [None]
